FAERS Safety Report 4534499-7 (Version None)
Quarter: 2004Q4

REPORT INFORMATION
  Report Type: 
  Country: None (occurrence: None)
  Receive Date: 20041214
  Receipt Date: 20041025
  Transmission Date: 20050328
  Serious: No
  Sender: FDA-Public Use
  Company Number: 2004241297US

PATIENT
  Sex: Female
  Weight: 58 kg

DRUGS (4)
  1. BEXTRA [Suspect]
     Dosage: 20 MG, TID, ORAL
     Route: 048
     Dates: start: 20030501, end: 20030101
  2. TYLENOL W/ CODEINE [Concomitant]
  3. MORPHINE [Concomitant]
  4. BENTYL [Concomitant]

REACTIONS (11)
  - ABDOMINAL DISTENSION [None]
  - BLOOD CHOLESTEROL INCREASED [None]
  - DIVERTICULITIS [None]
  - FATIGUE [None]
  - HEADACHE [None]
  - MEDICATION ERROR [None]
  - NAUSEA [None]
  - PALPITATIONS [None]
  - UPPER RESPIRATORY TRACT INFECTION [None]
  - VOMITING [None]
  - WEIGHT INCREASED [None]
